FAERS Safety Report 21396295 (Version 1)
Quarter: 2022Q3

REPORT INFORMATION
  Report Type: Spontaneous
  Country: US (occurrence: None)
  Receive Date: 20220928
  Receipt Date: 20220928
  Transmission Date: 20221027
  Serious: No
  Sender: FDA-Public Use
  Company Number: None

PATIENT
  Sex: Male

DRUGS (1)
  1. SIMPONI ARIA [Suspect]
     Active Substance: GOLIMUMAB
     Indication: Ankylosing spondylitis
     Dosage: 2MG/KG  EVERY 8 WEEKS IV?
     Route: 042
     Dates: start: 202206

REACTIONS (2)
  - Adverse drug reaction [None]
  - Therapy cessation [None]
